FAERS Safety Report 8947160 (Version 1)
Quarter: 2012Q4

REPORT INFORMATION
  Report Type: 
  Country: US (occurrence: US)
  Receive Date: 20121205
  Receipt Date: 20121205
  Transmission Date: 20130627
  Serious: No
  Sender: FDA-Public Use
  Company Number: US-PFIZER INC-2012301821

PATIENT
  Age: 50 Year
  Sex: Female

DRUGS (1)
  1. PRISTIQ [Suspect]
     Dosage: 50 mg, UNK

REACTIONS (1)
  - Drug ineffective [Unknown]
